FAERS Safety Report 6309707-2 (Version None)
Quarter: 2009Q3

REPORT INFORMATION
  Report Type: 
  Country: None (occurrence: None)
  Receive Date: 20090814
  Receipt Date: 20090805
  Transmission Date: 20100115
  Serious: Yes (Hospitalization, Other)
  Sender: FDA-Public Use
  Company Number: PHHY2008JP28198

PATIENT
  Age: 14 Year
  Sex: Male

DRUGS (9)
  1. GLEEVEC [Suspect]
     Indication: ACUTE LYMPHOCYTIC LEUKAEMIA
     Route: 048
  2. TACROLIMUS [Suspect]
  3. RADIATION THERAPY [Concomitant]
  4. FLUDARABINE PHOSPHATE [Concomitant]
     Dosage: 75 MG/M2, UNK
  5. CYCLOPHOSPHAMIDE [Concomitant]
     Dosage: 120 MG/KG, UNK
  6. METHOTREXATE [Concomitant]
  7. PREDNISOLONE [Concomitant]
  8. ANGIOTENSIN II ANTAGONISTS [Concomitant]
  9. DIPYRIDAMOLE [Concomitant]

REACTIONS (3)
  - CORD BLOOD TRANSPLANT THERAPY [None]
  - GRAFT VERSUS HOST DISEASE [None]
  - RENAL FAILURE CHRONIC [None]
